FAERS Safety Report 22016878 (Version 9)
Quarter: 2023Q4

REPORT INFORMATION
  Report Type: Spontaneous
  Country: US (occurrence: US)
  Receive Date: 20230221
  Receipt Date: 20231206
  Transmission Date: 20240109
  Serious: Yes (Other)
  Sender: FDA-Public Use
  Company Number: US-PFIZER INC-PV202300031545

PATIENT
  Age: 76 Year
  Sex: Female
  Weight: 89 kg

DRUGS (3)
  1. BRAFTOVI [Suspect]
     Active Substance: ENCORAFENIB
     Indication: Malignant melanoma
     Dosage: 6 CAPSULES (450 MG) ONCE DAILY WITH OR WITHOUT FOOD
     Route: 048
     Dates: start: 20210517
  2. BRAFTOVI [Suspect]
     Active Substance: ENCORAFENIB
     Dosage: 150 MG, DAILY (D1-28)
     Route: 048
  3. MEKTOVI [Suspect]
     Active Substance: BINIMETINIB
     Indication: Malignant melanoma
     Dosage: 45 MG (3 TABLETS), TWICE DAILY D1-28 (WITH OR WITHOUT FOOD)
     Route: 048
     Dates: start: 20210517

REACTIONS (11)
  - Neutropenia [Unknown]
  - Neoplasm progression [Unknown]
  - Memory impairment [Unknown]
  - Peripheral swelling [Unknown]
  - Fatigue [Unknown]
  - Dyspepsia [Unknown]
  - Nausea [Unknown]
  - Flatulence [Unknown]
  - Dizziness [Unknown]
  - Product prescribing error [Unknown]
  - Off label use [Unknown]
